FAERS Safety Report 9229547 (Version 4)
Quarter: 2014Q3

REPORT INFORMATION
  Report Type: Spontaneous
  Country: US (occurrence: US)
  Receive Date: 20130413
  Receipt Date: 20140701
  Transmission Date: 20150326
  Serious: Yes (Hospitalization)
  Sender: FDA-Public Use
  Company Number: US-B.I. PHARMACEUTICALS,INC./RIDGEFIELD-2013-BI-09673BP

PATIENT
  Age: 64 Year
  Sex: Female
  Weight: 122.5 kg

DRUGS (22)
  1. PRADAXA [Suspect]
     Active Substance: DABIGATRAN ETEXILATE MESYLATE
     Indication: ATRIAL FIBRILLATION
     Dosage: 300 MG
     Route: 048
     Dates: start: 20110416, end: 20110418
  2. VITAMIN D [Concomitant]
     Active Substance: CHOLECALCIFEROL
     Route: 048
  3. TRAMADOL [Concomitant]
     Active Substance: TRAMADOL
     Dosage: 200 MG
     Route: 048
  4. NOVOLOG [Concomitant]
     Active Substance: INSULIN ASPART
     Dosage: SQ; SLIDING SCALE
     Route: 065
  5. IMDUR [Concomitant]
     Active Substance: ISOSORBIDE MONONITRATE
     Dosage: 30 MG
     Route: 048
  6. ASPIRIN. [Concomitant]
     Active Substance: ASPIRIN
     Dosage: 81 MG
     Route: 048
  7. SPIRIVA [Concomitant]
     Active Substance: TIOTROPIUM BROMIDE MONOHYDRATE
     Route: 065
     Dates: start: 2010
  8. SENNASOFT [Concomitant]
     Dosage: 15 MG
     Route: 048
  9. LASIX [Concomitant]
     Active Substance: FUROSEMIDE
     Dosage: PO AT HS
     Route: 048
  10. IBUPROFEN. [Concomitant]
     Active Substance: IBUPROFEN
     Dosage: 1800 MG
     Route: 048
     Dates: end: 20110418
  11. LEVIMER [Concomitant]
     Dosage: 75 UNITS SQ AT SH
     Route: 065
  12. HYDRALAZINE HCL [Concomitant]
     Active Substance: HYDRALAZINE HYDROCHLORIDE
     Dosage: 50 MG
     Route: 048
  13. PROTONIX [Concomitant]
     Active Substance: PANTOPRAZOLE SODIUM
     Route: 065
     Dates: start: 2010
  14. SOTALOL. [Concomitant]
     Active Substance: SOTALOL
     Dosage: 240 MG
     Route: 048
     Dates: end: 20110418
  15. GLUCOTROL XI [Concomitant]
     Dosage: 20 MG
     Route: 048
  16. DIGOXIN. [Concomitant]
     Active Substance: DIGOXIN
     Dosage: 0.25 MG
     Route: 048
     Dates: start: 20110418
  17. VALTURNA [Concomitant]
     Active Substance: ALISKIREN HEMIFUMARATE\VALSARTAN
     Dosage: 150-160 MG DAILY
     Route: 048
  18. ZOCOR [Concomitant]
     Active Substance: SIMVASTATIN
     Dosage: PO AT HS
     Route: 048
  19. SINGULAIR [Concomitant]
     Active Substance: MONTELUKAST SODIUM
     Dosage: PO AT HS
     Route: 048
     Dates: start: 1986
  20. SYMBICORT [Concomitant]
     Active Substance: BUDESONIDE\FORMOTEROL FUMARATE DIHYDRATE
     Route: 065
     Dates: start: 2010
  21. ALBUTEROL INHALER [Concomitant]
     Active Substance: ALBUTEROL
     Dosage: 2 PUFFS Q4-6 HRS
     Route: 065
  22. TRICOR [Concomitant]
     Active Substance: FENOFIBRATE
     Dosage: 48 MG
     Route: 048

REACTIONS (7)
  - Upper gastrointestinal haemorrhage [Unknown]
  - International normalised ratio [Recovered/Resolved]
  - Toxicity to various agents [Recovered/Resolved]
  - Hyperkalaemia [Recovered/Resolved]
  - Renal failure acute [Unknown]
  - Fall [Unknown]
  - Anaemia [Unknown]

NARRATIVE: CASE EVENT DATE: 201104
